FAERS Safety Report 8337671-3 (Version None)
Quarter: 2012Q2

REPORT INFORMATION
  Report Type: 
  Country: None (occurrence: None)
  Receive Date: 20120504
  Receipt Date: 20120504
  Transmission Date: 20120825
  Serious: Yes (Hospitalization)
  Sender: FDA-Public Use
  Company Number: None

PATIENT
  Age: 85 Year
  Sex: Male

DRUGS (13)
  1. NAPROXEN [Suspect]
     Indication: OSTEOARTHRITIS
     Dosage: |DOSAGETEXT: 440MG||STRENGTH: 220MG||FREQ: EVERY 8 HOURS PRN||ROUTE: ORAL|
     Route: 048
  2. MULTI-VITAMIN [Concomitant]
     Route: 048
  3. OTC MAGENSIUM [Concomitant]
  4. SIMVASTATIN [Concomitant]
     Route: 048
  5. ASPIRIN [Concomitant]
     Route: 048
  6. PROSCAR [Concomitant]
     Route: 048
  7. VITAMIN D [Concomitant]
  8. OMEGA FISH OIL [Concomitant]
  9. ATROVENT NASAL SPRAY PRN [Concomitant]
     Route: 045
  10. LOSARTAN POTASSIUM [Concomitant]
     Route: 048
  11. IBUPROFEN [Suspect]
     Indication: OSTEOARTHRITIS
     Dosage: |DOSAGETEXT: 400.0 MG||STRENGTH: 200MG||FREQ: EVERY 6 HOURS PRN||ROUTE: ORAL|
     Route: 048
  12. ZETIA [Concomitant]
     Route: 048
  13. METOPROLOL TARTRATE [Concomitant]
     Route: 048

REACTIONS (5)
  - HAEMOGLOBIN DECREASED [None]
  - MELAENA [None]
  - GASTROINTESTINAL HAEMORRHAGE [None]
  - BLOOD CREATININE INCREASED [None]
  - GASTRIC ULCER [None]
